FAERS Safety Report 4903422-5 (Version None)
Quarter: 2006Q1

REPORT INFORMATION
  Report Type: 
  Country: None (occurrence: None)
  Receive Date: 20060206
  Receipt Date: 20060206
  Transmission Date: 20060701
  Serious: No
  Sender: FDA-Public Use
  Company Number: None

PATIENT
  Age: 9 Year
  Sex: Female
  Weight: 28 kg

DRUGS (1)
  1. RETROVIR [Suspect]
     Indication: HIV INFECTION
     Dosage: 16ML TID PO
     Route: 048
     Dates: start: 20060120, end: 20060130

REACTIONS (3)
  - RASH PAPULAR [None]
  - RASH PRURITIC [None]
  - SWELLING FACE [None]
